FAERS Safety Report 12328274 (Version 2)
Quarter: 2016Q2

REPORT INFORMATION
  Report Type: Spontaneous
  Country: JP (occurrence: JP)
  Receive Date: 20160503
  Receipt Date: 20160516
  Transmission Date: 20160815
  Serious: Yes (Other)
  Sender: FDA-Public Use
  Company Number: JP-ELI_LILLY_AND_COMPANY-JP201604009373

PATIENT
  Age: 77 Year
  Sex: Female

DRUGS (7)
  1. RIMATIL [Concomitant]
     Active Substance: BUCILLAMINE
  2. CELECOX [Concomitant]
     Active Substance: CELECOXIB
  3. PREDONINE [Concomitant]
     Active Substance: PREDNISOLONE\PREDNISOLONE ACETATE\PREDNISOLONE SODIUM SUCCINATE
     Indication: RHEUMATOID ARTHRITIS
     Dosage: UNK
  4. FORTEO [Suspect]
     Active Substance: TERIPARATIDE
     Indication: OSTEOPOROSIS
     Dosage: 20 UG, QD
     Route: 058
     Dates: start: 201602, end: 20160426
  5. LYRICA [Concomitant]
     Active Substance: PREGABALIN
     Route: 048
  6. PANTETHIN [Concomitant]
     Dosage: UNK
  7. GASLON [Concomitant]
     Active Substance: IRSOGLADINE MALEATE
     Dosage: UNK

REACTIONS (2)
  - Urine output decreased [Unknown]
  - Blood creatinine increased [Recovered/Resolved]

NARRATIVE: CASE EVENT DATE: 20160421
